FAERS Safety Report 12957531 (Version 16)
Quarter: 2023Q2

REPORT INFORMATION
  Report Type: Report from Study
  Country: US (occurrence: US)
  Receive Date: 20161118
  Receipt Date: 20230619
  Transmission Date: 20230722
  Serious: Yes (Hospitalization, Other)
  Sender: FDA-Public Use
  Company Number: US-SHIRE-US201617384

PATIENT
  Age: 1 Year
  Sex: Male
  Weight: 24 kg

DRUGS (26)
  1. IDURSULFASE [Suspect]
     Active Substance: IDURSULFASE
     Indication: Mucopolysaccharidosis I
     Dosage: 20 MILLIGRAM, Q2WEEKS
     Route: 041
     Dates: start: 201112
  2. IDURSULFASE [Suspect]
     Active Substance: IDURSULFASE
     Dosage: 16 MILLIGRAM, 1/WEEK
     Route: 042
     Dates: start: 20210126
  3. IDURSULFASE [Suspect]
     Active Substance: IDURSULFASE
     Dosage: 13 MILLIGRAM, 1/WEEK
     Route: 042
  4. COVID-19 VACCINE NOS [Suspect]
     Active Substance: COVID-19 VACCINE NOS
     Indication: COVID-19 immunisation
     Dosage: UNK
     Route: 065
  5. HEPARIN [Concomitant]
     Active Substance: HEPARIN SODIUM
     Dosage: UNK
     Route: 065
  6. DIPHENHYDRAMINE [Concomitant]
     Active Substance: DIPHENHYDRAMINE
     Dosage: UNK
     Route: 065
  7. MORPHINE SULFATE [Concomitant]
     Active Substance: MORPHINE SULFATE
     Dosage: UNK
     Route: 065
  8. EPINEPHRINE [Concomitant]
     Active Substance: EPINEPHRINE
     Dosage: UNK
     Route: 065
  9. SODIUM CHLORIDE [Concomitant]
     Active Substance: SODIUM CHLORIDE
     Dosage: UNK
     Route: 065
  10. GABAPENTIN [Concomitant]
     Active Substance: GABAPENTIN
     Dosage: UNK
     Route: 065
  11. MELATONIN [Concomitant]
     Active Substance: MELATONIN
     Indication: Sleep disorder
     Dosage: 3 MG, UNKNOWN
     Route: 048
  12. LIDOCAINE\PRILOCAINE [Concomitant]
     Active Substance: LIDOCAINE\PRILOCAINE
     Dosage: UNK
     Route: 065
  13. VITAMIN D3 [Concomitant]
     Active Substance: CHOLECALCIFEROL
     Dosage: UNK
     Route: 065
  14. ABILIFY [Concomitant]
     Active Substance: ARIPIPRAZOLE
     Dosage: UNK
     Route: 065
  15. SODIUM CHLORIDE [Concomitant]
     Active Substance: SODIUM CHLORIDE
     Dosage: UNK
     Route: 065
  16. ACETAMINOPHEN [Concomitant]
     Active Substance: ACETAMINOPHEN
     Dosage: UNK
     Route: 065
  17. MORPHINE [Concomitant]
     Active Substance: MORPHINE
     Dosage: UNK
     Route: 065
  18. FLONASE [Concomitant]
     Active Substance: FLUTICASONE PROPIONATE
     Indication: Tonsillar hypertrophy
     Dosage: 50 MICROGRAM
     Route: 050
  19. FLONASE [Concomitant]
     Active Substance: FLUTICASONE PROPIONATE
     Indication: Adenoidal hypertrophy
  20. FLONASE [Concomitant]
     Active Substance: FLUTICASONE PROPIONATE
     Indication: Prophylaxis
  21. BENADRYL [Concomitant]
     Active Substance: DIPHENHYDRAMINE HYDROCHLORIDE
     Indication: Urticaria
     Dosage: UNK
     Route: 065
     Dates: start: 20161114, end: 20161114
  22. LIDOCAINE [Concomitant]
     Active Substance: LIDOCAINE
     Dosage: UNK
     Route: 065
  23. ATROPINE SULFATE [Concomitant]
     Active Substance: ATROPINE SULFATE
     Route: 065
  24. LORAZEPAM [Concomitant]
     Active Substance: LORAZEPAM
     Route: 065
  25. SENNA [Concomitant]
     Active Substance: SENNA LEAF\SENNOSIDES\SENNOSIDES A AND B
     Indication: Product used for unknown indication
  26. OXYGEN [Concomitant]
     Active Substance: OXYGEN
     Dosage: UNK

REACTIONS (24)
  - Hypothermia [Unknown]
  - Hypoxia [Unknown]
  - Peripheral swelling [Unknown]
  - Peripheral coldness [Unknown]
  - Body temperature decreased [Unknown]
  - Heart rate decreased [Unknown]
  - Cognitive disorder [Unknown]
  - Erythema [Unknown]
  - Rash [Unknown]
  - Subcutaneous abscess [Not Recovered/Not Resolved]
  - Tooth abscess [Unknown]
  - Furuncle [Unknown]
  - Catheter site haemorrhage [Unknown]
  - Weight decreased [Recovering/Resolving]
  - Secretion discharge [Unknown]
  - Weight increased [Unknown]
  - Ear infection [Unknown]
  - Infusion related reaction [Recovered/Resolved]
  - Urticaria [Recovered/Resolved]
  - Cough [Unknown]
  - Dyspnoea [Unknown]
  - Vomiting [Unknown]
  - Inappropriate schedule of product administration [Unknown]
  - Product dose omission issue [Unknown]

NARRATIVE: CASE EVENT DATE: 20111201
